FAERS Safety Report 9934073 (Version 1)
Quarter: 2014Q1

REPORT INFORMATION
  Report Type: Spontaneous
  Country: US (occurrence: US)
  Receive Date: 20140228
  Receipt Date: 20140228
  Transmission Date: 20141002
  Serious: No
  Sender: FDA-Public Use
  Company Number: US-ABBVIE-14P-163-1197310-00

PATIENT
  Age: 46 Year
  Sex: Male
  Weight: 93.52 kg

DRUGS (3)
  1. ANDROGEL [Suspect]
     Indication: BLOOD TESTOSTERONE DECREASED
     Dosage: 2 PUMPS
     Route: 061
     Dates: start: 201303
  2. ALLEGRA [Concomitant]
     Indication: SEASONAL ALLERGY
  3. PROTONIX [Concomitant]
     Indication: GASTROOESOPHAGEAL REFLUX DISEASE

REACTIONS (2)
  - Drug ineffective [Not Recovered/Not Resolved]
  - Blood testosterone decreased [Not Recovered/Not Resolved]
